FAERS Safety Report 9190752 (Version 1)
Quarter: 2013Q1

REPORT INFORMATION
  Report Type: Spontaneous
  Country: FI (occurrence: FI)
  Receive Date: 20130326
  Receipt Date: 20130326
  Transmission Date: 20140127
  Serious: Yes (Hospitalization)
  Sender: FDA-Public Use
  Company Number: FI-BAXTER-2013BAX010671

PATIENT
  Age: 50 Year
  Sex: Female

DRUGS (2)
  1. SENDOXAN [Suspect]
     Indication: BREAST CANCER
     Route: 042
     Dates: start: 20121218, end: 20130205
  2. EPIRUBICIN [Concomitant]
     Indication: BREAST CANCER
     Route: 042
     Dates: start: 20121218

REACTIONS (12)
  - Rash pruritic [Recovering/Resolving]
  - Pyrexia [Recovering/Resolving]
  - Dyspnoea [Unknown]
  - Lymphadenopathy [Unknown]
  - Hypotension [Unknown]
  - Hepatic enzyme increased [Unknown]
  - Oxygen saturation decreased [Unknown]
  - Hepatic steatosis [Unknown]
  - Psychotic disorder [Unknown]
  - C-reactive protein increased [Recovered/Resolved]
  - Hypotonia [Recovered/Resolved]
  - Acute generalised exanthematous pustulosis [Recovering/Resolving]
